FAERS Safety Report 10009079 (Version 1)
Quarter: 2014Q1

REPORT INFORMATION
  Report Type: Spontaneous
  Country: US (occurrence: US)
  Receive Date: 20140313
  Receipt Date: 20140313
  Transmission Date: 20141002
  Serious: No
  Sender: FDA-Public Use
  Company Number: US-INCYTE CORPORATION-2012IN001428

PATIENT
  Sex: Male

DRUGS (10)
  1. JAKAFI [Suspect]
     Indication: MYELOFIBROSIS
     Dosage: 5 MG, BID
     Route: 048
     Dates: start: 20120726
  2. LIPITOR [Concomitant]
  3. OMEPRAZOLE [Concomitant]
  4. PERCODAN [Concomitant]
  5. ALEVE [Concomitant]
  6. FISH [Concomitant]
  7. COQ10 [Concomitant]
  8. LUTEIN [Concomitant]
  9. ASPIRIN [Concomitant]
     Dosage: 81 MG, UNK
  10. XANAX [Concomitant]

REACTIONS (2)
  - Back pain [Not Recovered/Not Resolved]
  - Pain in extremity [Not Recovered/Not Resolved]
